FAERS Safety Report 5158375-4 (Version None)
Quarter: 2006Q4

REPORT INFORMATION
  Report Type: 
  Country: None (occurrence: None)
  Receive Date: 20061121
  Receipt Date: 20061121
  Transmission Date: 20070319
  Serious: Yes (Hospitalization)
  Sender: FDA-Public Use
  Company Number: None

PATIENT
  Age: 54 Year
  Sex: Male

DRUGS (7)
  1. KALETRA [Suspect]
     Indication: HIV INFECTION
     Dosage: 3 TABS BID PO
     Route: 048
  2. EPZICOM [Suspect]
     Indication: HIV INFECTION
     Dosage: 1 TAB OD PO
     Route: 048
  3. FENTANYL [Concomitant]
  4. PERCOCET [Concomitant]
  5. ADVAIR DISKUS 100/50 [Concomitant]
  6. ATROVENT [Concomitant]
  7. ALBUTEROL [Concomitant]

REACTIONS (1)
  - PANCREATITIS [None]
